FAERS Safety Report 19064843 (Version 1)
Quarter: 2021Q1

REPORT INFORMATION
  Report Type: Report from Study
  Country: IL (occurrence: IL)
  Receive Date: 20210326
  Receipt Date: 20210326
  Transmission Date: 20210420
  Serious: Yes (Hospitalization)
  Sender: FDA-Public Use
  Company Number: IL-FERRINGPH-2021FE01937

PATIENT
  Sex: Female

DRUGS (1)
  1. MENOTROPHIN HP [Suspect]
     Active Substance: MENOTROPINS
     Indication: ASSISTED REPRODUCTIVE TECHNOLOGY
     Dosage: UNK
     Route: 065
     Dates: start: 202102

REACTIONS (3)
  - Disease complication [Recovering/Resolving]
  - Premature ovulation [Unknown]
  - Pain [Recovering/Resolving]
